FAERS Safety Report 8869545 (Version 1)
Quarter: 2012Q4

REPORT INFORMATION
  Report Type: 
  Country: US (occurrence: US)
  Receive Date: 20121023
  Receipt Date: 20121023
  Transmission Date: 20130627
  Serious: No
  Sender: FDA-Public Use
  Company Number: US-AMGEN-USASP2012048290

PATIENT
  Age: 59 Year
  Sex: Female

DRUGS (2)
  1. ENBREL [Suspect]
     Indication: PSORIASIS
     Dosage: 25 mg, 2 times/wk
     Dates: start: 2000, end: 2000
  2. SORIATANE [Concomitant]
     Dosage: 1 mg, UNK
     Dates: start: 201207

REACTIONS (5)
  - Vision blurred [Recovered/Resolved]
  - Sputum retention [Recovered/Resolved]
  - Skin exfoliation [Recovered/Resolved]
  - Contusion [Recovered/Resolved]
  - Psoriasis [Not Recovered/Not Resolved]
